FAERS Safety Report 6150237-9 (Version None)
Quarter: 2009Q2

REPORT INFORMATION
  Report Type: 
  Country: None (occurrence: None)
  Receive Date: 20090409
  Receipt Date: 20090403
  Transmission Date: 20091009
  Serious: Yes (Hospitalization)
  Sender: FDA-Public Use
  Company Number: IT-BAYER-200917959GPV

PATIENT
  Age: 81 Year
  Sex: Male

DRUGS (8)
  1. SORAFENIB [Suspect]
     Indication: HEPATIC NEOPLASM MALIGNANT
     Dosage: TOTAL DAILY DOSE: 400 MG
     Route: 048
     Dates: start: 20090220, end: 20090316
  2. GLIBOMET [Concomitant]
     Indication: DIABETES MELLITUS
     Route: 048
     Dates: start: 20050101, end: 20090316
  3. NEXIUM [Concomitant]
     Indication: GASTRITIS
     Route: 048
     Dates: start: 20050101, end: 20090316
  4. NORVASC [Concomitant]
     Indication: HYPERTENSION
     Route: 048
     Dates: start: 20070701, end: 20090316
  5. NAPRILENE [Concomitant]
     Indication: HYPERTENSION
     Route: 048
     Dates: start: 20070701, end: 20090316
  6. INDERAL [Concomitant]
     Indication: VARICES OESOPHAGEAL
     Route: 048
     Dates: start: 20050101, end: 20090316
  7. LASIX [Concomitant]
     Indication: OEDEMA
     Route: 048
     Dates: start: 20090201, end: 20090316
  8. LAEVOLAC [Concomitant]
     Indication: ENCEPHALOPATHY
     Route: 048
     Dates: start: 20050101, end: 20090316

REACTIONS (1)
  - HEPATIC FUNCTION ABNORMAL [None]
